FAERS Safety Report 10706493 (Version 1)
Quarter: 2015Q1

REPORT INFORMATION
  Report Type: Spontaneous
  Country: US (occurrence: None)
  Receive Date: 20150109
  Receipt Date: 20150109
  Transmission Date: 20150721
  Serious: No
  Sender: FDA-Public Use
  Company Number: None

PATIENT
  Age: 58 Year
  Sex: Female
  Weight: 65.77 kg

DRUGS (1)
  1. OLOPATADINE HCL [Suspect]
     Active Substance: OLOPATADINE HYDROCHLORIDE
     Indication: MULTIPLE ALLERGIES
     Dosage: 1 SPRAY EACH NOSTRIL ?TWICE DAILY INHALATION
     Route: 055
     Dates: start: 20141201, end: 20150108

REACTIONS (7)
  - Swelling [None]
  - Nasal pruritus [None]
  - Product quality issue [None]
  - Product substitution issue [None]
  - Drug ineffective [None]
  - Rhinorrhoea [None]
  - Sinus disorder [None]

NARRATIVE: CASE EVENT DATE: 20150108
